FAERS Safety Report 20985931 (Version 1)
Quarter: 2022Q2

REPORT INFORMATION
  Report Type: Spontaneous
  Country: GB (occurrence: GB)
  Receive Date: 20220621
  Receipt Date: 20220621
  Transmission Date: 20220721
  Serious: Yes (Disabling)
  Sender: FDA-Public Use
  Company Number: GB-SA-SAC20210618000239

PATIENT
  Sex: Female

DRUGS (1)
  1. AUBAGIO [Suspect]
     Active Substance: TERIFLUNOMIDE
     Indication: Multiple sclerosis
     Dosage: 14 MG; QD
     Route: 048
     Dates: start: 2017

REACTIONS (5)
  - Impaired work ability [Unknown]
  - Confusional state [Unknown]
  - Mobility decreased [Unknown]
  - Memory impairment [Unknown]
  - Product dose omission issue [Unknown]
